FAERS Safety Report 9509605 (Version 1)
Quarter: 2013Q3

REPORT INFORMATION
  Report Type: Spontaneous
  Country: US (occurrence: US)
  Receive Date: 20130909
  Receipt Date: 20130909
  Transmission Date: 20140515
  Serious: No
  Sender: FDA-Public Use
  Company Number: US-BRISTOL-MYERS SQUIBB COMPANY-18915553

PATIENT
  Age: 42 Year
  Sex: Female
  Weight: 102.04 kg

DRUGS (9)
  1. ABILIFY [Suspect]
     Indication: BIPOLAR DISORDER
     Dosage: DOSE INCREASED:5MG
  2. ABILIFY [Suspect]
     Indication: DEPRESSION
     Dosage: DOSE INCREASED:5MG
  3. DURAGESIC [Concomitant]
  4. COLACE [Concomitant]
  5. ASPIRIN [Concomitant]
     Dosage: MORNING
  6. NEURONTIN [Concomitant]
  7. ZANAFLEX [Concomitant]
  8. DILAUDID [Concomitant]
     Dosage: AS NEEDED
  9. KLONOPIN [Concomitant]
     Dosage: AS NEEDED

REACTIONS (2)
  - Oedema [Unknown]
  - Weight increased [Unknown]
